FAERS Safety Report 25362973 (Version 1)
Quarter: 2025Q2

REPORT INFORMATION
  Report Type: Spontaneous
  Country: US (occurrence: US)
  Receive Date: 20250527
  Receipt Date: 20250527
  Transmission Date: 20250716
  Serious: Yes (Life-Threatening, Hospitalization)
  Sender: MYLAN
  Company Number: US-MYLANLABS-2025M1044217

PATIENT
  Age: 36 Year
  Sex: Female

DRUGS (20)
  1. METHIMAZOLE [Suspect]
     Active Substance: METHIMAZOLE
     Indication: Graves^ disease
     Dosage: 20 MILLIGRAM, BID
  2. METHIMAZOLE [Suspect]
     Active Substance: METHIMAZOLE
     Dosage: 20 MILLIGRAM, BID
     Route: 065
  3. METHIMAZOLE [Suspect]
     Active Substance: METHIMAZOLE
     Dosage: 20 MILLIGRAM, BID
     Route: 065
  4. METHIMAZOLE [Suspect]
     Active Substance: METHIMAZOLE
     Dosage: 20 MILLIGRAM, BID
  5. VANCOMYCIN [Suspect]
     Active Substance: VANCOMYCIN
     Indication: Serratia infection
  6. VANCOMYCIN [Suspect]
     Active Substance: VANCOMYCIN
     Route: 065
  7. VANCOMYCIN [Suspect]
     Active Substance: VANCOMYCIN
     Route: 065
  8. VANCOMYCIN [Suspect]
     Active Substance: VANCOMYCIN
  9. MEROPENEM [Suspect]
     Active Substance: MEROPENEM
     Indication: Serratia infection
  10. MEROPENEM [Suspect]
     Active Substance: MEROPENEM
     Route: 065
  11. MEROPENEM [Suspect]
     Active Substance: MEROPENEM
     Route: 065
  12. MEROPENEM [Suspect]
     Active Substance: MEROPENEM
  13. MICAFUNGIN [Suspect]
     Active Substance: MICAFUNGIN SODIUM
     Indication: Candida infection
  14. MICAFUNGIN [Suspect]
     Active Substance: MICAFUNGIN SODIUM
     Route: 065
  15. MICAFUNGIN [Suspect]
     Active Substance: MICAFUNGIN SODIUM
     Route: 065
  16. MICAFUNGIN [Suspect]
     Active Substance: MICAFUNGIN SODIUM
  17. ATENOLOL [Concomitant]
     Active Substance: ATENOLOL
     Indication: Graves^ disease
     Dosage: 25 MILLIGRAM, QD
  18. ATENOLOL [Concomitant]
     Active Substance: ATENOLOL
     Dosage: 25 MILLIGRAM, QD
     Route: 065
  19. ATENOLOL [Concomitant]
     Active Substance: ATENOLOL
     Dosage: 25 MILLIGRAM, QD
     Route: 065
  20. ATENOLOL [Concomitant]
     Active Substance: ATENOLOL
     Dosage: 25 MILLIGRAM, QD

REACTIONS (4)
  - Liver function test increased [Unknown]
  - Pancytopenia [Recovered/Resolved]
  - Drug ineffective [Unknown]
  - Immune-mediated adverse reaction [Recovered/Resolved]
